FAERS Safety Report 7690335-1 (Version None)
Quarter: 2011Q3

REPORT INFORMATION
  Report Type: 
  Country: None (occurrence: None)
  Receive Date: 20110817
  Receipt Date: 20110817
  Transmission Date: 20111222
  Serious: Yes (Hospitalization)
  Sender: FDA-Public Use
  Company Number: None

PATIENT
  Age: 51 Year
  Sex: Female
  Weight: 50 kg

DRUGS (9)
  1. NORTRIPTYLINE HCL [Concomitant]
  2. RELPAX [Concomitant]
  3. ZOLPIDEM [Concomitant]
  4. LIPITOR [Concomitant]
  5. NORVASC [Concomitant]
  6. M.V.I. [Concomitant]
  7. INDERAL LA [Concomitant]
  8. SERTRALINE HYDROCHLORIDE [Concomitant]
  9. TIGECYLINE [Suspect]
     Dosage: DAILY IVPB
     Route: 042
     Dates: start: 20110523, end: 20110530

REACTIONS (1)
  - PANCREATITIS [None]
